FAERS Safety Report 14419129 (Version 2)
Quarter: 2018Q2

REPORT INFORMATION
  Report Type: Spontaneous
  Country: CA (occurrence: CA)
  Receive Date: 20180122
  Receipt Date: 20180413
  Transmission Date: 20180711
  Serious: Yes (Other)
  Sender: FDA-Public Use
  Company Number: CA-CELLTRION INC.-2017CA001616

PATIENT

DRUGS (8)
  1. INFLECTRA [Suspect]
     Active Substance: INFLIXIMAB-DYYB
     Dosage: 500 MG, CYCLIC: IN 6 WEEKS
     Route: 042
     Dates: start: 20170824, end: 20171012
  2. INFLECTRA [Suspect]
     Active Substance: INFLIXIMAB-DYYB
     Indication: ANKYLOSING SPONDYLITIS
     Dosage: 400 MG, EVERY 0,2,6 WEEKS THEN EVERY 8 WEEKS FOR 12 MONTHS
     Route: 042
     Dates: start: 20160420
  3. INFLECTRA [Suspect]
     Active Substance: INFLIXIMAB-DYYB
     Indication: CROHN^S DISEASE
     Dosage: 400 MG, CYCLIC
     Route: 042
     Dates: start: 20170325, end: 20170712
  4. INFLECTRA [Suspect]
     Active Substance: INFLIXIMAB-DYYB
     Dosage: 500 MG, CYCLIC EVERY 6 WEEKS
     Route: 042
     Dates: start: 20171122
  5. INFLECTRA [Suspect]
     Active Substance: INFLIXIMAB-DYYB
     Dosage: 500 MG, CYCLIC EVERY 6 WEEKS
     Route: 042
     Dates: start: 20180220
  6. SULFASALAZINE. [Concomitant]
     Active Substance: SULFASALAZINE
     Dosage: UNK
     Route: 048
  7. VENTOLIN [Concomitant]
     Active Substance: ALBUTEROL SULFATE
     Dosage: UNK, PRN
     Route: 065
  8. CELEBREX [Concomitant]
     Active Substance: CELECOXIB
     Indication: ECZEMA
     Dosage: UNK, PRN

REACTIONS (10)
  - Condition aggravated [Unknown]
  - Abdominal pain upper [Not Recovered/Not Resolved]
  - Infected cyst [Not Recovered/Not Resolved]
  - Body temperature decreased [Unknown]
  - Frequent bowel movements [Recovering/Resolving]
  - Motion sickness [Unknown]
  - Product use issue [Unknown]
  - Crohn^s disease [Unknown]
  - Nasopharyngitis [Not Recovered/Not Resolved]
  - Arthritis [Recovering/Resolving]

NARRATIVE: CASE EVENT DATE: 2017
